FAERS Safety Report 23835305 (Version 6)
Quarter: 2024Q2

REPORT INFORMATION
  Report Type: Spontaneous
  Country: US (occurrence: US)
  Receive Date: 20240509
  Receipt Date: 20240522
  Transmission Date: 20240715
  Serious: Yes (Hospitalization, Other)
  Sender: FDA-Public Use
  Company Number: US-MLMSERVICE-20240430-PI040956-00323-1

PATIENT
  Age: 38 Year
  Sex: Female

DRUGS (7)
  1. NASACORT ALLERGY 24HR [Suspect]
     Active Substance: TRIAMCINOLONE ACETONIDE
     Indication: Chronic rhinosinusitis with nasal polyps
     Dosage: NASAL PACKING
     Route: 045
     Dates: start: 202208
  2. PREDNISONE [Suspect]
     Active Substance: PREDNISONE
     Indication: Chronic rhinosinusitis with nasal polyps
     Dosage: TAPER?40 MG*4 DAYS, 30 MG*4 DAYS,20 MG*4 DAYS, 10 MG*4 DAYS
     Route: 065
     Dates: start: 202208, end: 202208
  3. PREDNISONE [Suspect]
     Active Substance: PREDNISONE
     Dosage: TAPER, TABLET
     Dates: start: 202208, end: 202208
  4. PREDNISONE [Suspect]
     Active Substance: PREDNISONE
     Dosage: 40 MG, QD, TABLET
     Dates: start: 202208, end: 202208
  5. PREDNISONE [Suspect]
     Active Substance: PREDNISONE
     Dosage: TAPER
     Dates: start: 202208, end: 202208
  6. BUDESONIDE [Suspect]
     Active Substance: BUDESONIDE
     Indication: Chronic rhinosinusitis with nasal polyps
     Dosage: LOCAL IMMUNOSUPPRESSION OF THE TISSUE
     Dates: start: 202208
  7. DECADRON [Suspect]
     Active Substance: DEXAMETHASONE
     Indication: Chronic rhinosinusitis with nasal polyps
     Dosage: INTRA-OPERATIVELY
     Route: 042
     Dates: start: 202208

REACTIONS (8)
  - Eye pain [Recovered/Resolved]
  - Leukocytosis [Recovered/Resolved]
  - Pupillary reflex impaired [Recovered/Resolved]
  - Sinusitis fungal [Recovered/Resolved]
  - Orbital infection [Recovered/Resolved]
  - Mucormycosis [Recovered/Resolved]
  - Systemic mycosis [Recovered/Resolved]
  - Headache [Recovered/Resolved]

NARRATIVE: CASE EVENT DATE: 20220812
